FAERS Safety Report 6110021-9 (Version None)
Quarter: 2009Q1

REPORT INFORMATION
  Report Type: 
  Country: None (occurrence: None)
  Receive Date: 20090310
  Receipt Date: 20081204
  Transmission Date: 20090719
  Serious: No
  Sender: FDA-Public Use
  Company Number: A0759133A

PATIENT
  Age: 64 Year
  Sex: Female

DRUGS (1)
  1. NICOTINE GUM 4MG UNKNOWN BRAND [Suspect]
     Dates: end: 20081202

REACTIONS (2)
  - ABDOMINAL PAIN UPPER [None]
  - TONSILLITIS [None]
